FAERS Safety Report 6715026-2 (Version None)
Quarter: 2010Q2

REPORT INFORMATION
  Report Type: 
  Country: None (occurrence: None)
  Receive Date: 20100507
  Receipt Date: 20100429
  Transmission Date: 20101027
  Serious: Yes (Hospitalization)
  Sender: FDA-Public Use
  Company Number: FR-PFIZER INC-2010054082

PATIENT
  Age: 84 Year
  Sex: Female

DRUGS (6)
  1. AMLOR [Suspect]
     Indication: HYPERTENSION
     Dosage: 10 MG, 1X/DAY
     Route: 048
     Dates: start: 20080101, end: 20100416
  2. NEXIUM [Suspect]
     Dosage: 1 DF, 1X/DAY
     Route: 048
     Dates: start: 20090101
  3. VASTAREL [Concomitant]
  4. PRAXILENE [Concomitant]
  5. RIVOTRIL [Concomitant]
  6. LORAZEPAM [Concomitant]

REACTIONS (1)
  - TOXIC SKIN ERUPTION [None]
